FAERS Safety Report 18509595 (Version 1)
Quarter: 2020Q4

REPORT INFORMATION
  Report Type: Spontaneous
  Country: FR (occurrence: FR)
  Receive Date: 20201117
  Receipt Date: 20201117
  Transmission Date: 20210114
  Serious: Yes (Hospitalization)
  Sender: FDA-Public Use
  Company Number: US-BRAINTREE LABORATORIES-200438

PATIENT
  Age: 74 Year
  Sex: Male
  Weight: 80 kg

DRUGS (1)
  1. IZINOVA [Suspect]
     Active Substance: MAGNESIUM SULFATE\POTASSIUM SULFATE\SODIUM SULFATE
     Route: 048
     Dates: start: 20200920, end: 20200921

REACTIONS (4)
  - Chromaturia [None]
  - Abdominal pain [None]
  - Vomiting [None]
  - Atrial tachycardia [None]

NARRATIVE: CASE EVENT DATE: 20200925
